FAERS Safety Report 10234929 (Version 1)
Quarter: 2014Q2

REPORT INFORMATION
  Report Type: Spontaneous
  Country: US (occurrence: None)
  Receive Date: 20140520
  Receipt Date: 20140520
  Transmission Date: 20141212
  Serious: Yes (Other)
  Sender: FDA-Public Use
  Company Number: 2013PL000206

PATIENT
  Age: 65 Year
  Sex: Female
  Weight: 72.6 kg

DRUGS (2)
  1. AZATHIOPRINE (AZATHIOPRINE) [Suspect]
     Indication: CROHN^S DISEASE
     Route: 048
     Dates: start: 201212
  2. REMICADE (INFLIXIMAB) [Concomitant]
     Indication: CROHN^S DISEASE
     Route: 042
     Dates: start: 201303

REACTIONS (1)
  - Malignant melanoma [None]
